FAERS Safety Report 14737765 (Version 1)
Quarter: 2018Q2

REPORT INFORMATION
  Report Type: Spontaneous
  Country: US (occurrence: US)
  Receive Date: 20180409
  Receipt Date: 20180409
  Transmission Date: 20180711
  Serious: Yes (Hospitalization)
  Sender: FDA-Public Use
  Company Number: US-VIFOR (INTERNATIONAL) INC.-VIT-2016-04782

PATIENT
  Age: 54 Year
  Sex: Male

DRUGS (22)
  1. ACETYLSALICYLIC ACID [Concomitant]
     Active Substance: ASPIRIN
  2. GLIPIZIDE. [Concomitant]
     Active Substance: GLIPIZIDE
  3. LOVENOX [Concomitant]
     Active Substance: ENOXAPARIN SODIUM
  4. PLAVIX [Concomitant]
     Active Substance: CLOPIDOGREL BISULFATE
  5. PROTONIX [Concomitant]
     Active Substance: PANTOPRAZOLE SODIUM
  6. HYDRALAZINE HYDROCHLORIDE. [Concomitant]
     Active Substance: HYDRALAZINE HYDROCHLORIDE
  7. METOPROLOL TARTRATE. [Concomitant]
     Active Substance: METOPROLOL TARTRATE
  8. MAGNESIUM [Concomitant]
     Active Substance: MAGNESIUM
  9. ALLOPURINOL. [Concomitant]
     Active Substance: ALLOPURINOL
  10. LISINOPRIL. [Concomitant]
     Active Substance: LISINOPRIL
  11. SODIUM BICARBONATE. [Concomitant]
     Active Substance: SODIUM BICARBONATE
  12. CLONIDINE HYDROCHLORIDE. [Concomitant]
     Active Substance: CLONIDINE HYDROCHLORIDE
  13. FOLIC ACID. [Concomitant]
     Active Substance: FOLIC ACID
  14. VELTASSA [Suspect]
     Active Substance: PATIROMER
     Indication: HYPERKALAEMIA
     Route: 048
     Dates: start: 20160714
  15. PROLIA [Concomitant]
     Active Substance: DENOSUMAB
  16. VELTASSA [Suspect]
     Active Substance: PATIROMER
     Dates: start: 20160823
  17. CALCITRIOL. [Concomitant]
     Active Substance: CALCITRIOL
  18. LIPITOR [Concomitant]
     Active Substance: ATORVASTATIN CALCIUM
  19. METAMUCIL [Concomitant]
     Active Substance: PLANTAGO SEED
  20. AMLODIPINE BESILATE [Concomitant]
     Active Substance: AMLODIPINE BESYLATE
  21. FENOFIBRATE. [Concomitant]
     Active Substance: FENOFIBRATE
  22. LASIX [Concomitant]
     Active Substance: FUROSEMIDE

REACTIONS (10)
  - Cardiac failure congestive [Unknown]
  - Hyperkalaemia [Unknown]
  - Hypertension [Unknown]
  - Hypotension [Unknown]
  - Weight decreased [Unknown]
  - Blood creatinine increased [Unknown]
  - Cough [Unknown]
  - Hypervolaemia [Unknown]
  - Acute kidney injury [Recovering/Resolving]
  - Gout [Unknown]

NARRATIVE: CASE EVENT DATE: 20160719
